FAERS Safety Report 7348817-8 (Version None)
Quarter: 2011Q1

REPORT INFORMATION
  Report Type: 
  Country: None (occurrence: None)
  Receive Date: 20110314
  Receipt Date: 20100601
  Transmission Date: 20110831
  Serious: Yes (Hospitalization)
  Sender: FDA-Public Use
  Company Number: US-BAYER-201023105NA

PATIENT
  Sex: Female
  Weight: 68.182 kg

DRUGS (15)
  1. YASMIN [Suspect]
     Indication: CONTRACEPTION
     Dates: start: 20060103, end: 20070728
  2. UNCODEABLE ^UNCLASSIFIABLE^ [Concomitant]
     Indication: URINARY TRACT INFECTION
     Dosage: 100 MG, UNK
  3. MIDOL IB [Concomitant]
  4. ASPIRIN [Concomitant]
  5. CELEXA [Concomitant]
  6. CALCIUM VIT D [Concomitant]
  7. NITROFURAN [Concomitant]
     Indication: URINARY TRACT INFECTION
  8. BACLOFEN [Concomitant]
  9. CITALOPRAM HYDROBROMIDE [Concomitant]
     Indication: DEPRESSION
     Dosage: 20 MG, UNK
  10. SIMVASTATIN [Concomitant]
     Dosage: 40 MG, UNK
  11. ZOCOR [Concomitant]
  12. MOTRIN [Concomitant]
  13. YAZ [Suspect]
  14. BACLOFEN [Concomitant]
     Indication: HYPOTONIA
     Dosage: 10 MG, UNK
  15. ADVIL [Concomitant]

REACTIONS (3)
  - ISCHAEMIC STROKE [None]
  - HEMIPLEGIA [None]
  - APHASIA [None]
